FAERS Safety Report 7951774-4 (Version None)
Quarter: 2011Q4

REPORT INFORMATION
  Report Type: 
  Country: None (occurrence: None)
  Receive Date: 20111201
  Receipt Date: 20111122
  Transmission Date: 20120403
  Serious: Yes (Other)
  Sender: FDA-Public Use
  Company Number: US-JNJFOC-20111110417

PATIENT
  Age: 13 Year
  Sex: Male

DRUGS (11)
  1. HALOPERIDOL [Suspect]
     Route: 048
  2. LORAZEPAM [Concomitant]
     Route: 065
  3. LORAZEPAM [Concomitant]
     Route: 065
  4. BENZTROPINE MESYLATE [Suspect]
     Indication: PRODUCT USED FOR UNKNOWN INDICATION
     Route: 048
  5. CLONIDINE [Concomitant]
     Route: 048
  6. HALOPERIDOL [Suspect]
     Indication: TOURETTE'S DISORDER
     Route: 048
  7. HALOPERIDOL [Suspect]
     Route: 048
  8. HALOPERIDOL [Suspect]
     Route: 048
  9. CLONIDINE [Concomitant]
     Route: 048
  10. CLONIDINE [Concomitant]
     Route: 048
  11. BENZTROPINE MESYLATE [Suspect]
     Route: 048

REACTIONS (3)
  - DYSPHORIA [None]
  - TREATMENT NONCOMPLIANCE [None]
  - TOURETTE'S DISORDER [None]
